FAERS Safety Report 5064249-X (Version None)
Quarter: 2006Q3

REPORT INFORMATION
  Report Type: 
  Country: None (occurrence: None)
  Receive Date: 20060706
  Receipt Date: 20060619
  Transmission Date: 20061208
  Serious: Yes (Other)
  Sender: FDA-Public Use
  Company Number: 28318

PATIENT
  Age: 53 Year
  Sex: Female
  Weight: 102 kg

DRUGS (2)
  1. MIDAZOLAM HCL [Suspect]
     Indication: ENDOSCOPY
     Dosage: 3MG/IVP
     Dates: start: 20060509
  2. MEPIRIDINE [Concomitant]

REACTIONS (1)
  - PRURITUS [None]
